FAERS Safety Report 5325507-4 (Version None)
Quarter: 2007Q2

REPORT INFORMATION
  Report Type: 
  Country: None (occurrence: None)
  Receive Date: 20070515
  Receipt Date: 20070509
  Transmission Date: 20071010
  Serious: Yes (Other)
  Sender: FDA-Public Use
  Company Number: PT-SANOFI-SYNTHELABO-A01200704001

PATIENT
  Sex: Female

DRUGS (3)
  1. FLUOROURACIL [Concomitant]
     Indication: COLON CANCER
     Route: 042
  2. ISOVORIN [Concomitant]
     Route: 042
  3. ELOXATIN [Suspect]
     Indication: COLON CANCER
     Route: 042

REACTIONS (1)
  - LARYNGOSPASM [None]
